FAERS Safety Report 7943154-2 (Version None)
Quarter: 2011Q4

REPORT INFORMATION
  Report Type: 
  Country: None (occurrence: None)
  Receive Date: 20111128
  Receipt Date: 20111118
  Transmission Date: 20120403
  Serious: Yes (Other)
  Sender: FDA-Public Use
  Company Number: PHEH2011US009867

PATIENT
  Age: 47 Year
  Sex: Female

DRUGS (1)
  1. ESTRADERM [Suspect]
     Dosage: 0.05 MG, UNK
     Route: 062

REACTIONS (1)
  - SUICIDE ATTEMPT [None]
